FAERS Safety Report 8724921 (Version 2)
Quarter: 2015Q2

REPORT INFORMATION
  Report Type: Report from Study
  Country: US (occurrence: US)
  Receive Date: 20120815
  Receipt Date: 20150625
  Transmission Date: 20150821
  Serious: Yes (Hospitalization)
  Sender: FDA-Public Use
  Company Number: US-ROCHE-1100781

PATIENT
  Sex: Male

DRUGS (10)
  1. HEPARIN [Concomitant]
     Active Substance: HEPARIN SODIUM
     Dosage: 1200 UNITS/HOUR
     Route: 065
  2. MORPHINE SULFATE. [Concomitant]
     Active Substance: MORPHINE SULFATE
     Indication: PAIN
     Route: 065
  3. ACTIVASE [Suspect]
     Active Substance: ALTEPLASE
     Indication: ACUTE MYOCARDIAL INFARCTION
     Dosage: OVER 1 MINUTE
     Route: 042
  4. ACTIVASE [Suspect]
     Active Substance: ALTEPLASE
     Dosage: OVER ONE HOUR
     Route: 042
  5. ACTIVASE [Suspect]
     Active Substance: ALTEPLASE
     Dosage: OVER ONE HOUR
     Route: 042
  6. LIDOCAINE. [Concomitant]
     Active Substance: LIDOCAINE
     Route: 042
  7. XANAX [Concomitant]
     Active Substance: ALPRAZOLAM
     Route: 065
  8. LOPRESSOR [Concomitant]
     Active Substance: METOPROLOL TARTRATE
     Route: 048
  9. ACTIVASE [Suspect]
     Active Substance: ALTEPLASE
     Dosage: OVER ONE HOUR
     Route: 042
  10. NITROGLYCERIN. [Concomitant]
     Active Substance: NITROGLYCERIN

REACTIONS (2)
  - Ventricular extrasystoles [Unknown]
  - Blood creatine phosphokinase increased [Unknown]
